FAERS Safety Report 13340730 (Version 1)
Quarter: 2017Q1

REPORT INFORMATION
  Report Type: Spontaneous
  Country: US (occurrence: US)
  Receive Date: 20170316
  Receipt Date: 20170316
  Transmission Date: 20170428
  Serious: No
  Sender: FDA-Public Use
  Company Number: US-ENDO PHARMACEUTICALS INC-2016-004765

PATIENT
  Age: 70 Year
  Sex: Female
  Weight: 47.67 kg

DRUGS (1)
  1. HYDROCODONE BITARTRATE/APAP TABLETS 7.5MG/300MG [Suspect]
     Active Substance: ACETAMINOPHEN\HYDROCODONE BITARTRATE
     Indication: ARTHRALGIA
     Dosage: 7.5 MG/300 MG  HALF TABLET
     Route: 048
     Dates: start: 201606, end: 201607

REACTIONS (7)
  - Pain [Recovered/Resolved]
  - Condition aggravated [Recovered/Resolved]
  - Incorrect dose administered [Recovered/Resolved]
  - Inflammation [Recovered/Resolved]
  - Swelling [Recovered/Resolved]
  - Musculoskeletal stiffness [Recovered/Resolved]
  - Headache [Recovered/Resolved]

NARRATIVE: CASE EVENT DATE: 201606
